FAERS Safety Report 23674686 (Version 2)
Quarter: 2025Q3

REPORT INFORMATION
  Report Type: Report from Study
  Country: AU (occurrence: AU)
  Receive Date: 20240326
  Receipt Date: 20250723
  Transmission Date: 20251021
  Serious: Yes (Death, Hospitalization)
  Sender: ABBVIE
  Company Number: AU-JNJFOC-20231003446

PATIENT
  Age: 76 Year
  Sex: Male

DRUGS (1)
  1. IMBRUVICA [Suspect]
     Active Substance: IBRUTINIB
     Indication: Diffuse large B-cell lymphoma
     Route: 048
     Dates: end: 20240221

REACTIONS (5)
  - Death [Fatal]
  - Off label use [Unknown]
  - Pneumonia aspiration [Unknown]
  - Central nervous system lymphoma [Unknown]
  - Sepsis [Unknown]
